FAERS Safety Report 9665928 (Version 1)
Quarter: 2013Q4

REPORT INFORMATION
  Report Type: Spontaneous
  Country: US (occurrence: None)
  Receive Date: 20131101
  Receipt Date: 20131101
  Transmission Date: 20140711
  Serious: No
  Sender: FDA-Public Use
  Company Number: None

PATIENT
  Age: 35 Year
  Sex: Female
  Weight: 63.05 kg

DRUGS (1)
  1. MIRVASO [Suspect]
     Indication: ROSACEA
     Dosage: PEA-SIZE AMOUNT  ONCE DAILY  APPLIED TO A SURFACE, USUALLY THE SKIN.
     Dates: start: 20131018, end: 20131025

REACTIONS (2)
  - Application site erythema [None]
  - Rebound effect [None]
